FAERS Safety Report 8814041 (Version 1)
Quarter: 2012Q4

REPORT INFORMATION
  Report Type: 
  Country: US (occurrence: US)
  Receive Date: 20120928
  Receipt Date: 20120928
  Transmission Date: 20130627
  Serious: Yes (Other)
  Sender: FDA-Public Use
  Company Number: US-PFIZER INC-2012239379

PATIENT
  Age: 44 Year
  Sex: Male
  Weight: 145 kg

DRUGS (5)
  1. INLYTA [Suspect]
     Indication: RENAL CANCER
     Dosage: 5 mg, 2x/day
     Route: 048
     Dates: start: 20120921
  2. COUMADINE [Concomitant]
     Dosage: UNK
  3. LISINOPRIL [Concomitant]
     Indication: HYPERTENSION
     Dosage: 40 mg, UNK
  4. ACCOLATE [Concomitant]
     Dosage: UNK
  5. AMLODIPINE [Concomitant]
     Indication: HYPERTENSION
     Dosage: 10 mg, UNK

REACTIONS (2)
  - Haemorrhage urinary tract [Unknown]
  - Dysuria [Unknown]
